FAERS Safety Report 6347476-0 (Version None)
Quarter: 2009Q3

REPORT INFORMATION
  Report Type: 
  Country: None (occurrence: None)
  Receive Date: 20090910
  Receipt Date: 20090901
  Transmission Date: 20100115
  Serious: Yes (Other)
  Sender: FDA-Public Use
  Company Number: US-ELI_LILLY_AND_COMPANY-US200909000232

PATIENT
  Sex: Female

DRUGS (2)
  1. BYETTA [Suspect]
  2. LANTUS [Concomitant]
     Dosage: 30 U, DAILY (1/D)
     Route: 058

REACTIONS (2)
  - CEREBROVASCULAR ACCIDENT [None]
  - SPEECH DISORDER [None]
